FAERS Safety Report 15146432 (Version 2)
Quarter: 2019Q1

REPORT INFORMATION
  Report Type: Spontaneous
  Country: GB (occurrence: GB)
  Receive Date: 20180715
  Receipt Date: 20190107
  Transmission Date: 20190417
  Serious: Yes (Hospitalization)
  Sender: FDA-Public Use
  Company Number: PHHY2015GB177985

PATIENT
  Age: 43 Year
  Sex: Female
  Weight: 80.6 kg

DRUGS (40)
  1. BISOPROLOL [Concomitant]
     Active Substance: BISOPROLOL
     Indication: PRODUCT USED FOR UNKNOWN INDICATION
     Dosage: 5 MG, QD
     Route: 048
     Dates: start: 20150811, end: 20150812
  2. ADENOSINE. [Concomitant]
     Active Substance: ADENOSINE
     Indication: PRODUCT USED FOR UNKNOWN INDICATION
     Dosage: UNK
     Route: 042
  3. PERTUZUMAB. [Suspect]
     Active Substance: PERTUZUMAB
     Dosage: 420 MG, QW
     Route: 042
     Dates: end: 20150508
  4. TRASTUZUMAB. [Suspect]
     Active Substance: TRASTUZUMAB
     Indication: BREAST CANCER METASTATIC
     Dosage: 600 MG, Q3W
     Route: 058
     Dates: start: 20150226, end: 20150508
  5. SALBUTAMOL [Concomitant]
     Active Substance: ALBUTEROL
     Indication: MALAISE
     Dosage: 2.5 MG, UNK(NEBULIZED)
     Route: 065
  6. TRASTUZUMAB EMTANSINE [Suspect]
     Active Substance: ADO-TRASTUZUMAB EMTANSINE
     Indication: BREAST CANCER METASTATIC
     Dosage: 290 MG, Q3W
     Route: 042
     Dates: start: 20150604
  7. DEXAMETHASONE. [Concomitant]
     Active Substance: DEXAMETHASONE
     Indication: CONFUSIONAL STATE
     Dosage: UNK
     Route: 042
  8. OXYGEN. [Concomitant]
     Active Substance: OXYGEN
     Indication: PRODUCT USED FOR UNKNOWN INDICATION
     Dosage: UNK
     Route: 065
  9. OXYGEN. [Concomitant]
     Active Substance: OXYGEN
     Dosage: 8 L, UNK(INHALANT)
     Route: 065
  10. PARACETAMOL [Concomitant]
     Active Substance: ACETAMINOPHEN
     Dosage: 2000 MG, UNK
     Route: 048
  11. PARACETAMOL [Concomitant]
     Active Substance: ACETAMINOPHEN
     Dosage: 1 G, UNK
     Route: 048
     Dates: start: 20150823, end: 20150825
  12. GRANISETRON [Concomitant]
     Active Substance: GRANISETRON
     Indication: PRODUCT USED FOR UNKNOWN INDICATION
     Dosage: 1 MG, QD
     Route: 042
  13. HYDROCORTISONE. [Concomitant]
     Active Substance: HYDROCORTISONE
     Indication: PRODUCT USED FOR UNKNOWN INDICATION
     Dosage: 100 MG, QD
     Route: 042
  14. SALBUTAMOL [Concomitant]
     Active Substance: ALBUTEROL
     Dosage: UNK(INHALATION)
     Route: 065
  15. DALTEPARIN [Concomitant]
     Active Substance: DALTEPARIN
     Indication: PRODUCT USED FOR UNKNOWN INDICATION
     Dosage: 1 DF, QD(15000 UNIT)
     Route: 058
     Dates: start: 201504
  16. DALTEPARIN [Concomitant]
     Active Substance: DALTEPARIN
     Dosage: 15000 UNIT
     Route: 058
     Dates: start: 201504
  17. PARACETAMOL [Concomitant]
     Active Substance: ACETAMINOPHEN
     Indication: HEADACHE
     Dosage: 4 G, QD
     Route: 048
     Dates: start: 20150823, end: 20150825
  18. ONDANSETRON [Concomitant]
     Active Substance: ONDANSETRON
     Indication: PRODUCT USED FOR UNKNOWN INDICATION
     Dosage: 16 MBQ, QD
     Route: 048
     Dates: start: 20150226, end: 20150424
  19. ONDANSETRON [Concomitant]
     Active Substance: ONDANSETRON
     Dosage: 8 MBQ, UNK
     Route: 048
     Dates: start: 20150226, end: 20150424
  20. METOCLOPRAMIDE. [Concomitant]
     Active Substance: METOCLOPRAMIDE
     Indication: PRODUCT USED FOR UNKNOWN INDICATION
     Dosage: 30 MG, QD
     Route: 048
     Dates: start: 20150226, end: 201508
  21. ADENOSINE. [Concomitant]
     Active Substance: ADENOSINE
     Route: 042
  22. SENNA [Concomitant]
     Active Substance: SENNA LEAF\SENNOSIDES\SENNOSIDES A AND B
     Indication: PRODUCT USED FOR UNKNOWN INDICATION
     Dosage: 7.5 MG, UNK
     Route: 048
  23. ONDANSETRON [Concomitant]
     Active Substance: ONDANSETRON
     Dosage: 48 MG, UNK
     Route: 065
  24. HYDROCORTISONE. [Concomitant]
     Active Substance: HYDROCORTISONE
     Dosage: ONCE
     Route: 042
  25. ZOPICLONE [Concomitant]
     Active Substance: ZOPICLONE
     Indication: PRODUCT USED FOR UNKNOWN INDICATION
     Dosage: 3.75 MG, UNK
     Route: 048
  26. PACLITAXEL. [Suspect]
     Active Substance: PACLITAXEL
     Indication: BREAST CANCER METASTATIC
     Dosage: 192.5 MG, Q3W
     Route: 042
     Dates: start: 20150226, end: 20150522
  27. PACLITAXEL. [Suspect]
     Active Substance: PACLITAXEL
     Dosage: MOST RECENT DOSE RECEIVED ON 22/05/2015
     Route: 042
     Dates: start: 20150226, end: 20150522
  28. OXYGEN. [Concomitant]
     Active Substance: OXYGEN
     Route: 065
  29. TRAMADOL. [Concomitant]
     Active Substance: TRAMADOL
     Indication: PRODUCT USED FOR UNKNOWN INDICATION
     Dosage: 50 MG, UNK
     Route: 048
  30. CHLORPHENAMINE [Concomitant]
     Active Substance: CHLORPHENIRAMINE MALEATE
     Indication: PRODUCT USED FOR UNKNOWN INDICATION
     Dosage: 10 MG, QD
     Route: 042
  31. DOXYCYCLINE. [Concomitant]
     Active Substance: DOXYCYCLINE
     Indication: MALAISE
     Dosage: UNK
     Route: 048
  32. PERTUZUMAB. [Suspect]
     Active Substance: PERTUZUMAB
     Indication: BREAST CANCER METASTATIC
     Dosage: 840 MG, Q3W
     Route: 042
     Dates: start: 20150226
  33. DEXAMETHASONE. [Concomitant]
     Active Substance: DEXAMETHASONE
     Dosage: 1 DF, QD
     Route: 048
     Dates: start: 201502, end: 20150823
  34. LACTULOSE. [Concomitant]
     Active Substance: LACTULOSE
     Indication: PRODUCT USED FOR UNKNOWN INDICATION
     Dosage: 15 ML, UNK
     Route: 048
  35. BISOPROLOL [Concomitant]
     Active Substance: BISOPROLOL
     Dosage: 5 MG, QD
     Route: 048
     Dates: start: 20150815
  36. OXYGEN. [Concomitant]
     Active Substance: OXYGEN
     Dosage: INHALANT
     Route: 065
  37. MORPHINE SULFATE. [Concomitant]
     Active Substance: MORPHINE SULFATE
     Indication: PRODUCT USED FOR UNKNOWN INDICATION
     Dosage: 5 ML, UNK
     Route: 048
  38. METOCLOPRAMIDE. [Concomitant]
     Active Substance: METOCLOPRAMIDE
     Dosage: 10 MG, UNK
     Route: 048
     Dates: start: 20150226, end: 201508
  39. DOXYCYCLINE. [Concomitant]
     Active Substance: DOXYCYCLINE
     Dosage: 1 DF, QD
     Route: 065
     Dates: start: 201505
  40. LORAZEPAM. [Concomitant]
     Active Substance: LORAZEPAM
     Indication: PRODUCT USED FOR UNKNOWN INDICATION
     Dosage: 1 MG, UNK
     Route: 048

REACTIONS (18)
  - Vomiting [Unknown]
  - Dry mouth [Not Recovered/Not Resolved]
  - Nausea [Not Recovered/Not Resolved]
  - Lower respiratory tract infection [Recovered/Resolved with Sequelae]
  - Confusional state [Not Recovered/Not Resolved]
  - Dyspnoea [Not Recovered/Not Resolved]
  - Depressed mood [Not Recovered/Not Resolved]
  - Supraventricular tachycardia [Recovered/Resolved with Sequelae]
  - Malaise [Not Recovered/Not Resolved]
  - Headache [Not Recovered/Not Resolved]
  - Incontinence [Not Recovered/Not Resolved]
  - Sepsis [Recovered/Resolved with Sequelae]
  - Pneumonia [Not Recovered/Not Resolved]
  - Rash [Not Recovered/Not Resolved]
  - Nausea [Recovered/Resolved]
  - Tachycardia [Recovered/Resolved with Sequelae]
  - Dyspepsia [Not Recovered/Not Resolved]
  - Dizziness [Not Recovered/Not Resolved]

NARRATIVE: CASE EVENT DATE: 20150410
